FAERS Safety Report 5700289-2 (Version None)
Quarter: 2008Q2

REPORT INFORMATION
  Report Type: 
  Country: None (occurrence: None)
  Receive Date: 20080410
  Receipt Date: 20080331
  Transmission Date: 20081010
  Serious: Yes (Hospitalization, Disabling, Other)
  Sender: FDA-Public Use
  Company Number: A0709079A

PATIENT
  Age: 33 Year
  Sex: Female
  Weight: 70 kg

DRUGS (12)
  1. TYKERB [Suspect]
     Indication: BREAST CANCER
     Dosage: 1250MG UNKNOWN
     Route: 048
     Dates: start: 20070822, end: 20080211
  2. FOLIC ACID [Concomitant]
     Dosage: 1MG PER DAY
     Route: 048
  3. PRILOSEC [Concomitant]
     Dosage: 20MG PER DAY
     Route: 048
  4. CELEXA [Concomitant]
     Dosage: 45MG PER DAY
     Route: 048
  5. LORAZEPAM [Concomitant]
     Dosage: 1MG AT NIGHT
     Route: 048
  6. KEPPRA [Concomitant]
     Dosage: 500MG TWICE PER DAY
     Route: 048
  7. XELODA [Concomitant]
  8. BENTYL [Concomitant]
     Route: 048
  9. ZYRTEC [Concomitant]
  10. MULTI-VITAMIN [Concomitant]
  11. DECADRON [Concomitant]
  12. IMODIUM [Concomitant]

REACTIONS (3)
  - DRUG INEFFECTIVE [None]
  - HEPATOTOXICITY [None]
  - PANCREATITIS [None]
